FAERS Safety Report 24437589 (Version 1)
Quarter: 2024Q4

REPORT INFORMATION
  Report Type: Spontaneous
  Country: US (occurrence: None)
  Receive Date: 20241011
  Receipt Date: 20241011
  Transmission Date: 20250115
  Serious: Yes (Life-Threatening, Hospitalization, Other)
  Sender: Public
  Company Number: None

PATIENT
  Age: 44 Year
  Sex: Male
  Weight: 22.5 kg

DRUGS (1)
  1. YONDELIS [Suspect]
     Active Substance: TRABECTEDIN

REACTIONS (4)
  - Hypertransaminasaemia [None]
  - Multiple organ dysfunction syndrome [None]
  - Acute respiratory distress syndrome [None]
  - Sepsis [None]

NARRATIVE: CASE EVENT DATE: 20231004
